FAERS Safety Report 17438878 (Version 2)
Quarter: 2020Q1

REPORT INFORMATION
  Report Type: Spontaneous
  Country: JP (occurrence: JP)
  Receive Date: 20200220
  Receipt Date: 20200306
  Transmission Date: 20200409
  Serious: Yes (Death, Other)
  Sender: FDA-Public Use
  Company Number: JP-ACTELION-A-CH2020-201898

PATIENT

DRUGS (1)
  1. TRACLEER [Suspect]
     Active Substance: BOSENTAN
     Indication: PULMONARY ARTERIAL HYPERTENSION
     Dosage: UNK MG
     Route: 048

REACTIONS (8)
  - Pulmonary arterial hypertension [Unknown]
  - Cough [Unknown]
  - Hypovolaemic shock [Unknown]
  - Dyspnoea exertional [Unknown]
  - Poor feeding infant [Unknown]
  - Pulmonary alveolar haemorrhage [Fatal]
  - Respiratory disorder [Unknown]
  - Hypoxia [Unknown]
